FAERS Safety Report 7789563-6 (Version None)
Quarter: 2011Q3

REPORT INFORMATION
  Report Type: 
  Country: None (occurrence: None)
  Receive Date: 20110930
  Receipt Date: 20110920
  Transmission Date: 20111222
  Serious: Yes (Hospitalization)
  Sender: FDA-Public Use
  Company Number: JP-JNJFOC-20100404645

PATIENT
  Age: 48 Year
  Sex: Female
  Weight: 40 kg

DRUGS (16)
  1. REMICADE [Suspect]
     Route: 042
     Dates: start: 20100820
  2. REMICADE [Suspect]
     Route: 042
     Dates: start: 20101008
  3. ALFAROL [Concomitant]
     Indication: PROPHYLAXIS
     Dosage: DOSE 0.5 RG
     Route: 048
  4. MUCOSTA [Concomitant]
     Indication: PSORIASIS
     Route: 048
  5. REMICADE [Suspect]
     Dosage: 2 TOTAL DOSES
     Route: 042
     Dates: start: 20100430
  6. LOXONIN [Concomitant]
     Indication: PSORIASIS
     Route: 048
  7. PREDNISOLONE [Suspect]
     Indication: PSORIASIS
     Route: 048
     Dates: end: 20100406
  8. RHEUMATREX [Suspect]
     Route: 048
     Dates: start: 20100330, end: 20100406
  9. REMICADE [Suspect]
     Route: 042
     Dates: start: 20100318
  10. RHEUMATREX [Suspect]
     Route: 048
     Dates: end: 20100323
  11. REMICADE [Suspect]
     Route: 042
     Dates: start: 20100625
  12. FOLIC ACID [Concomitant]
     Indication: PROPHYLAXIS
     Route: 048
  13. PREDNISOLONE [Suspect]
     Dosage: NOT SUSPECT BEGINNING THIS DATE
     Route: 048
     Dates: start: 20100407, end: 20100413
  14. RHEUMATREX [Suspect]
     Indication: PSORIASIS
     Dosage: NOT SUSPECT BEGINNING THIS DATE
     Route: 048
     Dates: start: 20100413
  15. REMICADE [Suspect]
     Indication: PSORIATIC ARTHROPATHY
     Dosage: 2 TOTAL DOSES
     Route: 042
     Dates: start: 20100401
  16. ANTEBATE [Concomitant]
     Indication: PSORIASIS
     Dates: start: 20100318

REACTIONS (3)
  - HERPES ZOSTER [None]
  - WHITE BLOOD CELL COUNT DECREASED [None]
  - FURUNCLE [None]
